FAERS Safety Report 4509499-3 (Version None)
Quarter: 2004Q4

REPORT INFORMATION
  Report Type: 
  Country: None (occurrence: None)
  Receive Date: 20041119
  Receipt Date: 20041102
  Transmission Date: 20050328
  Serious: Yes (Hospitalization)
  Sender: FDA-Public Use
  Company Number: USA040876505

PATIENT
  Age: 20 Year
  Sex: Male

DRUGS (2)
  1. STRATTERA [Suspect]
     Indication: ATTENTION DEFICIT/HYPERACTIVITY DISORDER
  2. HYDROCODONE W/APAP [Concomitant]

REACTIONS (8)
  - ATTENTION-SEEKING BEHAVIOUR [None]
  - DEPRESSION [None]
  - INTENTIONAL SELF-INJURY [None]
  - LOSS OF EMPLOYMENT [None]
  - MULTIPLE DRUG OVERDOSE [None]
  - RELATIONSHIP BREAKDOWN [None]
  - SINUS ARRHYTHMIA [None]
  - SINUS TACHYCARDIA [None]
